FAERS Safety Report 6866787-3 (Version None)
Quarter: 2010Q3

REPORT INFORMATION
  Report Type: 
  Country: None (occurrence: None)
  Receive Date: 20100707
  Receipt Date: 20080520
  Transmission Date: 20110219
  Serious: No
  Sender: FDA-Public Use
  Company Number: 2008-00085

PATIENT
  Sex: Female
  Weight: 58.9676 kg

DRUGS (4)
  1. ZICAM COLD REMEDY NASAL GEL [Suspect]
     Indication: NASOPHARYNGITIS
     Dosage: BID INTERMITTENTLY
     Dates: start: 20060101, end: 20080301
  2. LEVOTHROID [Concomitant]
  3. ACTONEL [Concomitant]
  4. ASPIRIN [Concomitant]

REACTIONS (2)
  - AGEUSIA [None]
  - ANOSMIA [None]
